FAERS Safety Report 18954469 (Version 1)
Quarter: 2021Q1

REPORT INFORMATION
  Report Type: Report from Study
  Country: IE (occurrence: IE)
  Receive Date: 20210301
  Receipt Date: 20210301
  Transmission Date: 20210420
  Serious: Yes (Hospitalization)
  Sender: FDA-Public Use
  Company Number: IE-PFIZER INC-2021180481

PATIENT

DRUGS (10)
  1. LAXIDO PAEDS [Concomitant]
     Dosage: UNK, 2X/DAY (EVERY 12 HOURS)
     Dates: start: 20210131, end: 20210206
  2. ORAMORPH SR SUSTAINED RELEASE [Concomitant]
     Active Substance: MORPHINE SULFATE
     Dosage: 10 MG, CYCLIC (EVERY 4 HRS)
     Dates: start: 20210129, end: 20210130
  3. LACTULOSE. [Concomitant]
     Active Substance: LACTULOSE
     Dosage: 15 ML (OTHER)(EVERY 12 HRS)
     Dates: start: 20210130, end: 20210201
  4. CYCLIZINE [Concomitant]
     Active Substance: CYCLIZINE
     Dosage: 25 MG, 3X/DAY (EVERY 8 HOURS)
     Dates: start: 20210130, end: 20210207
  5. OMEPRAZOLE. [Concomitant]
     Active Substance: OMEPRAZOLE
     Dosage: 10 MG, 2X/DAY (OTHER)(EVERY 12 HRS)
     Dates: start: 20210130, end: 20210209
  6. AMBISOME [Concomitant]
     Active Substance: AMPHOTERICIN B
     Dosage: 66 MG (OTHER)(M/W/F 24)
     Dates: start: 20210129, end: 20210212
  7. MITOXANTRONE HCL [Suspect]
     Active Substance: MITOXANTRONE HYDROCHLORIDE
     Indication: ACUTE MYELOID LEUKAEMIA
     Dosage: 20 MG/M2, 1X/DAY
     Route: 042
     Dates: start: 20210130, end: 20210202
  8. GEMTUZUMAB OZOGAMICIN [Suspect]
     Active Substance: GEMTUZUMAB OZOGAMICIN
     Indication: ACUTE MYELOID LEUKAEMIA
     Dosage: 0.5 MG (OTHER)
     Route: 042
     Dates: start: 20210202, end: 20210208
  9. ONDANSETRON [Concomitant]
     Active Substance: ONDANSETRON
     Dosage: 8.0 MG (OTHER)(EVERY 8 HRS)
     Dates: start: 20210129
  10. PARACETAMOL [Concomitant]
     Active Substance: ACETAMINOPHEN
     Dosage: 1 G, 4X/DAY (EVERY 6 HRS)
     Dates: start: 20210202, end: 20210206

REACTIONS (1)
  - Febrile neutropenia [Not Recovered/Not Resolved]

NARRATIVE: CASE EVENT DATE: 20210212
